FAERS Safety Report 8871435 (Version 2)
Quarter: 2013Q2

REPORT INFORMATION
  Report Type: Spontaneous
  Country: US (occurrence: US)
  Receive Date: 20121023
  Receipt Date: 20130412
  Transmission Date: 20140414
  Serious: Yes (Hospitalization, Other)
  Sender: FDA-Public Use
  Company Number: US-ASTELLAS-2012US009739

PATIENT
  Age: 67 Year
  Sex: Male
  Weight: 73 kg

DRUGS (6)
  1. PROGRAF [Suspect]
     Indication: HEART TRANSPLANT
     Dosage: 3 MG, BID
     Route: 048
     Dates: start: 20101203, end: 2012
  2. PROGRAF [Suspect]
     Dosage: 1 MG, BID
     Route: 048
     Dates: start: 201210
  3. PREDNISONE [Concomitant]
     Indication: HEART TRANSPLANT
     Dosage: 5 MG, UID/QD
     Route: 048
     Dates: start: 20101203
  4. COUMADIN                           /00014802/ [Concomitant]
     Indication: ANTICOAGULANT THERAPY
     Dosage: 4 MG, UID/QD
     Route: 048
     Dates: start: 2011
  5. COUMADIN                           /00014802/ [Concomitant]
     Dosage: 3 MG, UID/QD
     Route: 048
     Dates: start: 2011
  6. VORICONAZOLE [Concomitant]
     Indication: ANTIFUNGAL TREATMENT
     Dosage: 200 MG, UID/QD
     Route: 048
     Dates: start: 2011

REACTIONS (22)
  - Drug ineffective [Unknown]
  - Heart transplant rejection [Unknown]
  - Heart transplant rejection [Unknown]
  - Heart transplant rejection [Not Recovered/Not Resolved]
  - Bronchopulmonary aspergillosis [Not Recovered/Not Resolved]
  - Deep vein thrombosis [Not Recovered/Not Resolved]
  - Renal failure chronic [Unknown]
  - Hyperglycaemia [Recovering/Resolving]
  - Squamous cell carcinoma [Unknown]
  - Immunosuppressant drug level increased [Recovered/Resolved]
  - Pneumonia cytomegaloviral [Unknown]
  - Sepsis [Unknown]
  - Subclavian vein thrombosis [Unknown]
  - Atrial tachycardia [Unknown]
  - Treatment noncompliance [Unknown]
  - Actinic keratosis [Unknown]
  - Headache [Recovered/Resolved]
  - Nausea [Recovered/Resolved]
  - Vomiting [Recovered/Resolved]
  - Sinusitis [Unknown]
  - Anxiety [Unknown]
  - Depression [Unknown]
